FAERS Safety Report 6968904-3 (Version None)
Quarter: 2010Q3

REPORT INFORMATION
  Report Type: 
  Country: None (occurrence: None)
  Receive Date: 20100903
  Receipt Date: 20100903
  Transmission Date: 20110219
  Serious: Yes (Hospitalization)
  Sender: FDA-Public Use
  Company Number: None

PATIENT
  Sex: Male
  Weight: 88.7 kg

DRUGS (2)
  1. CISPLATIN [Suspect]
     Dosage: 105 MG
  2. ETOPOSIDE [Suspect]
     Dosage: 197 MG

REACTIONS (2)
  - CHILLS [None]
  - FEBRILE NEUTROPENIA [None]
